FAERS Safety Report 8465106-9 (Version None)
Quarter: 2012Q2

REPORT INFORMATION
  Report Type: 
  Country: None (occurrence: None)
  Receive Date: 20120626
  Receipt Date: 20120618
  Transmission Date: 20120825
  Serious: Yes (Hospitalization)
  Sender: FDA-Public Use
  Company Number: US-BAYER-2012-061024

PATIENT
  Age: 48 Year
  Sex: Female
  Weight: 94.331 kg

DRUGS (27)
  1. IRON W/FOLIC ACID [Concomitant]
     Dosage: DAILY
  2. IBUPROFEN (ADVIL) [Concomitant]
     Dosage: UNK UNK, PRN
  3. HYDROXYZINE [Concomitant]
     Dosage: 25 MG, UNK
     Dates: start: 20071006
  4. LEXAPRO [Concomitant]
     Dosage: 5 MG, DAILY
  5. YASMIN [Suspect]
     Indication: CONTRACEPTION
     Dosage: UNK
  6. CLINDAMYCIN [Concomitant]
     Dosage: UNK
  7. ZYRTEC-D 12 HOUR [Concomitant]
     Dosage: UNK UNK, BID, AS NEEDED.
  8. AMITRIPTYLINE HCL [Concomitant]
     Dosage: 20 MG, HS
     Route: 048
  9. MULTI-VITAMIN [Concomitant]
     Dosage: DAILY
  10. PHENERGAN [Concomitant]
     Dosage: UNK UNK, PRN
  11. HYDROCHLOROTHIAZIDE [Concomitant]
     Dosage: 25 MG, DAILY
  12. SINGULAIR [Concomitant]
     Dosage: 10 MG, DAILY AS NEEDED.
  13. YAZ [Suspect]
     Indication: CONTRACEPTION
     Dosage: UNK
  14. KEFZOL [Concomitant]
     Dosage: UNK
  15. TYGACIL [Concomitant]
     Dosage: UNK
  16. TEMAZEPAM [Concomitant]
     Dosage: 15 MG, UNK
     Dates: start: 20070827
  17. GABAPENTIN [Concomitant]
     Dosage: 100 MG, UNK
     Dates: start: 20071006
  18. HYDROXYZINE [Concomitant]
     Dosage: 25 MG, UNK
     Dates: start: 20071020
  19. VALTREX [Concomitant]
     Dosage: 500 MG, UNK
     Dates: start: 20071015
  20. YAZ [Suspect]
     Indication: MENSTRUAL DISORDER
  21. PEPCID [Concomitant]
     Dosage: 20 MG, BID
  22. TEMAZEPAM [Concomitant]
     Dosage: 15 MG, UNK
     Dates: start: 20070922
  23. ANTIBIOTICS [Concomitant]
     Indication: CELLULITIS
     Dosage: UNK
  24. VICODIN [Concomitant]
     Dosage: UNK UNK, PRN
  25. POTASSIUM CHLORIDE [Concomitant]
     Dosage: 20 MG, DAILY.
  26. ALBUTEROL [Concomitant]
     Dosage: NEBULISER INHALATION
     Route: 045
  27. TEMAZEPAM [Concomitant]
     Dosage: 15 MG, UNK
     Dates: start: 20071020

REACTIONS (1)
  - PULMONARY EMBOLISM [None]
